FAERS Safety Report 7563981-3 (Version None)
Quarter: 2011Q2

REPORT INFORMATION
  Report Type: 
  Country: None (occurrence: None)
  Receive Date: 20110622
  Receipt Date: 20110609
  Transmission Date: 20111010
  Serious: Yes (Hospitalization)
  Sender: FDA-Public Use
  Company Number: JP-ROCHE-782250

PATIENT
  Sex: Male

DRUGS (11)
  1. PREDNISOLONE [Concomitant]
     Route: 048
     Dates: start: 20110128, end: 20110208
  2. TOCILIZUMAB [Suspect]
     Indication: JUVENILE ARTHRITIS
     Route: 041
     Dates: start: 20110112, end: 20110516
  3. PREDNISOLONE [Concomitant]
     Route: 048
     Dates: start: 20110209, end: 20110222
  4. PREDNISOLONE [Concomitant]
     Dosage: POWDERED MEDICINE
     Route: 048
     Dates: end: 20110127
  5. PREDNISOLONE [Concomitant]
     Route: 048
     Dates: start: 20110405, end: 20110418
  6. PREDNISOLONE [Concomitant]
     Route: 048
     Dates: start: 20110223, end: 20110307
  7. PREDNISOLONE [Concomitant]
     Route: 048
     Dates: start: 20110323, end: 20110404
  8. NEORAL [Concomitant]
     Route: 048
     Dates: start: 20110414, end: 20110517
  9. PREDNISOLONE [Concomitant]
     Route: 048
     Dates: start: 20110419
  10. NEORAL [Concomitant]
     Route: 048
     Dates: end: 20110413
  11. PREDNISOLONE [Concomitant]
     Route: 048
     Dates: start: 20110308, end: 20110322

REACTIONS (2)
  - PNEUMATOSIS INTESTINALIS [None]
  - INTUSSUSCEPTION [None]
